FAERS Safety Report 23950919 (Version 6)
Quarter: 2025Q3

REPORT INFORMATION
  Report Type: Spontaneous
  Country: GB (occurrence: GB)
  Receive Date: 20240607
  Receipt Date: 20250807
  Transmission Date: 20251021
  Serious: Yes (Hospitalization, Other)
  Sender: MYLAN
  Company Number: GB-MYLANLABS-2024M1047182

PATIENT
  Age: 58 Year
  Sex: Female

DRUGS (60)
  1. CLOZARIL [Suspect]
     Active Substance: CLOZAPINE
     Indication: Schizophrenia
     Route: 048
     Dates: start: 20080815, end: 20240510
  2. CLOZARIL [Suspect]
     Active Substance: CLOZAPINE
     Dates: start: 20080815, end: 20240510
  3. CLOZARIL [Suspect]
     Active Substance: CLOZAPINE
     Dates: start: 20080815, end: 20240510
  4. CLOZARIL [Suspect]
     Active Substance: CLOZAPINE
     Route: 048
     Dates: start: 20080815, end: 20240510
  5. CLOZARIL [Suspect]
     Active Substance: CLOZAPINE
     Route: 048
  6. CLOZARIL [Suspect]
     Active Substance: CLOZAPINE
  7. CLOZARIL [Suspect]
     Active Substance: CLOZAPINE
  8. CLOZARIL [Suspect]
     Active Substance: CLOZAPINE
     Route: 048
  9. CARBAMAZEPINE [Suspect]
     Active Substance: CARBAMAZEPINE
     Indication: Mood altered
     Route: 065
  10. CARBAMAZEPINE [Suspect]
     Active Substance: CARBAMAZEPINE
  11. CARBAMAZEPINE [Suspect]
     Active Substance: CARBAMAZEPINE
  12. CARBAMAZEPINE [Suspect]
     Active Substance: CARBAMAZEPINE
     Route: 065
  13. CARBAMAZEPINE [Suspect]
     Active Substance: CARBAMAZEPINE
     Dosage: 50 MILLIGRAM, BID (TITRATING REGIMEN CURRENTLY)
     Route: 048
  14. CARBAMAZEPINE [Suspect]
     Active Substance: CARBAMAZEPINE
     Dosage: 50 MILLIGRAM, BID (TITRATING REGIMEN CURRENTLY)
  15. CARBAMAZEPINE [Suspect]
     Active Substance: CARBAMAZEPINE
     Dosage: 50 MILLIGRAM, BID (TITRATING REGIMEN CURRENTLY)
  16. CARBAMAZEPINE [Suspect]
     Active Substance: CARBAMAZEPINE
     Dosage: 50 MILLIGRAM, BID (TITRATING REGIMEN CURRENTLY)
     Route: 048
  17. CINNARIZINE [Suspect]
     Active Substance: CINNARIZINE
     Indication: Vertigo
     Dosage: 30 MILLIGRAM, TID (START DATE: 11-DEC-2024)
  18. CINNARIZINE [Suspect]
     Active Substance: CINNARIZINE
     Dosage: 30 MILLIGRAM, TID (START DATE: 11-DEC-2024)
     Route: 048
  19. CINNARIZINE [Suspect]
     Active Substance: CINNARIZINE
     Dosage: 30 MILLIGRAM, TID (START DATE: 11-DEC-2024)
     Route: 048
  20. CINNARIZINE [Suspect]
     Active Substance: CINNARIZINE
     Dosage: 30 MILLIGRAM, TID (START DATE: 11-DEC-2024)
  21. DOCUSATE [Suspect]
     Active Substance: DOCUSATE
     Indication: Product used for unknown indication
     Dosage: 200 MILLIGRAM, PM (START DATE: 17-APR-2025)
  22. DOCUSATE [Suspect]
     Active Substance: DOCUSATE
     Dosage: 200 MILLIGRAM, PM (START DATE: 17-APR-2025)
     Route: 048
  23. DOCUSATE [Suspect]
     Active Substance: DOCUSATE
     Dosage: 200 MILLIGRAM, PM (START DATE: 17-APR-2025)
     Route: 048
  24. DOCUSATE [Suspect]
     Active Substance: DOCUSATE
     Dosage: 200 MILLIGRAM, PM (START DATE: 17-APR-2025)
  25. FOLIC ACID [Suspect]
     Active Substance: FOLIC ACID
     Indication: Product used for unknown indication
     Dosage: 5 MILLIGRAM, QD (START DATE: 01-MAR-2025)
  26. FOLIC ACID [Suspect]
     Active Substance: FOLIC ACID
     Dosage: 5 MILLIGRAM, QD (START DATE: 01-MAR-2025)
     Route: 048
  27. FOLIC ACID [Suspect]
     Active Substance: FOLIC ACID
     Dosage: 5 MILLIGRAM, QD (START DATE: 01-MAR-2025)
     Route: 048
  28. FOLIC ACID [Suspect]
     Active Substance: FOLIC ACID
     Dosage: 5 MILLIGRAM, QD (START DATE: 01-MAR-2025)
  29. LORAZEPAM [Suspect]
     Active Substance: LORAZEPAM
     Indication: Product used for unknown indication
     Dosage: 1 MILLIGRAM, TID (START DATE: 27-MAR-2025)
  30. LORAZEPAM [Suspect]
     Active Substance: LORAZEPAM
     Dosage: 1 MILLIGRAM, TID (START DATE: 27-MAR-2025)
     Route: 065
  31. LORAZEPAM [Suspect]
     Active Substance: LORAZEPAM
     Dosage: 1 MILLIGRAM, TID (START DATE: 27-MAR-2025)
     Route: 065
  32. LORAZEPAM [Suspect]
     Active Substance: LORAZEPAM
     Dosage: 1 MILLIGRAM, TID (START DATE: 27-MAR-2025)
  33. MOVICOL [Suspect]
     Active Substance: POLYETHYLENE GLYCOL 3350\POTASSIUM CHLORIDE\SODIUM BICARBONATE\SODIUM CHLORIDE
     Indication: Product used for unknown indication
  34. MOVICOL [Suspect]
     Active Substance: POLYETHYLENE GLYCOL 3350\POTASSIUM CHLORIDE\SODIUM BICARBONATE\SODIUM CHLORIDE
     Route: 048
  35. MOVICOL [Suspect]
     Active Substance: POLYETHYLENE GLYCOL 3350\POTASSIUM CHLORIDE\SODIUM BICARBONATE\SODIUM CHLORIDE
     Route: 048
  36. MOVICOL [Suspect]
     Active Substance: POLYETHYLENE GLYCOL 3350\POTASSIUM CHLORIDE\SODIUM BICARBONATE\SODIUM CHLORIDE
  37. PROCYCLIDINE [Suspect]
     Active Substance: PROCYCLIDINE
     Indication: Product used for unknown indication
  38. PROCYCLIDINE [Suspect]
     Active Substance: PROCYCLIDINE
     Route: 048
  39. PROCYCLIDINE [Suspect]
     Active Substance: PROCYCLIDINE
     Route: 048
  40. PROCYCLIDINE [Suspect]
     Active Substance: PROCYCLIDINE
  41. PROMETHAZINE [Suspect]
     Active Substance: PROMETHAZINE HYDROCHLORIDE
     Indication: Product used for unknown indication
  42. PROMETHAZINE [Suspect]
     Active Substance: PROMETHAZINE HYDROCHLORIDE
     Route: 048
  43. PROMETHAZINE [Suspect]
     Active Substance: PROMETHAZINE HYDROCHLORIDE
     Route: 048
  44. PROMETHAZINE [Suspect]
     Active Substance: PROMETHAZINE HYDROCHLORIDE
  45. SENNA [Suspect]
     Active Substance: SENNOSIDES
     Indication: Product used for unknown indication
     Dosage: 15 MILLIGRAM, PM
  46. SENNA [Suspect]
     Active Substance: SENNOSIDES
     Dosage: 15 MILLIGRAM, PM
     Route: 048
  47. SENNA [Suspect]
     Active Substance: SENNOSIDES
     Dosage: 15 MILLIGRAM, PM
     Route: 048
  48. SENNA [Suspect]
     Active Substance: SENNOSIDES
     Dosage: 15 MILLIGRAM, PM
  49. ZOPICLONE [Suspect]
     Active Substance: ZOPICLONE
     Indication: Product used for unknown indication
     Dosage: 7.5 MILLIGRAM, PM (START DATE: 31-DEC-2024)
  50. ZOPICLONE [Suspect]
     Active Substance: ZOPICLONE
     Dosage: 7.5 MILLIGRAM, PM (START DATE: 31-DEC-2024)
     Route: 048
  51. ZOPICLONE [Suspect]
     Active Substance: ZOPICLONE
     Dosage: 7.5 MILLIGRAM, PM (START DATE: 31-DEC-2024)
     Route: 048
  52. ZOPICLONE [Suspect]
     Active Substance: ZOPICLONE
     Dosage: 7.5 MILLIGRAM, PM (START DATE: 31-DEC-2024)
  53. ZUCLOPENTHIXOL DECANOATE [Concomitant]
     Active Substance: ZUCLOPENTHIXOL DECANOATE
     Dosage: 500 MILLIGRAM, QW (START DATE: 07-APR-2025)
  54. ZUCLOPENTHIXOL DECANOATE [Concomitant]
     Active Substance: ZUCLOPENTHIXOL DECANOATE
     Dosage: 500 MILLIGRAM, QW (START DATE: 07-APR-2025)
     Route: 030
  55. ZUCLOPENTHIXOL DECANOATE [Concomitant]
     Active Substance: ZUCLOPENTHIXOL DECANOATE
     Dosage: 500 MILLIGRAM, QW (START DATE: 07-APR-2025)
     Route: 030
  56. ZUCLOPENTHIXOL DECANOATE [Concomitant]
     Active Substance: ZUCLOPENTHIXOL DECANOATE
     Dosage: 500 MILLIGRAM, QW (START DATE: 07-APR-2025)
  57. OLANZAPINE [Concomitant]
     Active Substance: OLANZAPINE
     Dosage: 10 MILLIGRAM, PM
  58. OLANZAPINE [Concomitant]
     Active Substance: OLANZAPINE
     Dosage: 10 MILLIGRAM, PM
     Route: 048
  59. OLANZAPINE [Concomitant]
     Active Substance: OLANZAPINE
     Dosage: 10 MILLIGRAM, PM
     Route: 048
  60. OLANZAPINE [Concomitant]
     Active Substance: OLANZAPINE
     Dosage: 10 MILLIGRAM, PM

REACTIONS (9)
  - Mental impairment [Unknown]
  - Pneumonia [Unknown]
  - Neutropenia [Recovered/Resolved]
  - COVID-19 [Unknown]
  - Catatonia [Unknown]
  - White blood cell count decreased [Recovered/Resolved]
  - Platelet count increased [Recovered/Resolved]
  - No adverse event [Recovered/Resolved]
  - Treatment noncompliance [Unknown]

NARRATIVE: CASE EVENT DATE: 20240528
